FAERS Safety Report 25023847 (Version 2)
Quarter: 2025Q3

REPORT INFORMATION
  Report Type: Spontaneous
  Country: CH (occurrence: CH)
  Receive Date: 20250228
  Receipt Date: 20250825
  Transmission Date: 20251020
  Serious: Yes (Hospitalization, Other)
  Sender: TAKEDA
  Company Number: None

PATIENT
  Age: 50 Year
  Sex: Female

DRUGS (8)
  1. BRINTELLIX [Interacting]
     Active Substance: VORTIOXETINE HYDROBROMIDE
     Indication: Product used for unknown indication
     Dosage: 10 MILLIGRAM, QD
     Dates: start: 202409
  2. FLUOROURACIL [Interacting]
     Active Substance: FLUOROURACIL
     Indication: Anal cancer
     Dosage: 1554 MILLIGRAM, QD
     Dates: start: 20240909, end: 20240912
  3. MITOMYCIN [Interacting]
     Active Substance: MITOMYCIN
     Indication: Anal cancer
     Dates: start: 20240909, end: 20240909
  4. MITOMYCIN [Interacting]
     Active Substance: MITOMYCIN
     Dates: start: 20241017, end: 20241017
  5. PANTOZOL [Concomitant]
     Active Substance: PANTOPRAZOLE SODIUM
     Indication: Prophylaxis against gastrointestinal ulcer
     Dosage: 40 MILLIGRAM, QD
     Dates: start: 202408
  6. PALONOSETRON [Concomitant]
     Active Substance: PALONOSETRON
     Indication: Product used for unknown indication
  7. PALONOSETRON [Concomitant]
     Active Substance: PALONOSETRON
  8. PEGFILGRASTIM [Concomitant]
     Active Substance: PEGFILGRASTIM
     Indication: Product used for unknown indication

REACTIONS (4)
  - Pancytopenia [Not Recovered/Not Resolved]
  - Thrombocytopenia [Not Recovered/Not Resolved]
  - Subdural haematoma [Recovering/Resolving]
  - Drug interaction [Not Recovered/Not Resolved]

NARRATIVE: CASE EVENT DATE: 20240901
